FAERS Safety Report 8454887-6 (Version None)
Quarter: 2012Q2

REPORT INFORMATION
  Report Type: 
  Country: None (occurrence: None)
  Receive Date: 20120614
  Receipt Date: 20120607
  Transmission Date: 20120825
  Serious: Yes (Hospitalization)
  Sender: FDA-Public Use
  Company Number: 2011SP047592

PATIENT
  Age: 49 Year
  Sex: Male

DRUGS (15)
  1. DEXAMETHASONE [Concomitant]
  2. QUESTRAN [Concomitant]
  3. FOLIC ACID [Concomitant]
  4. MOTILIUM [Concomitant]
  5. OMEPRAZOLE [Concomitant]
  6. IMODIUM [Concomitant]
  7. NEO CYTAMEN [Concomitant]
  8. OXYCONTIN [Concomitant]
  9. OSTEOFOS [Concomitant]
  10. TEMODAL [Suspect]
     Indication: MIXED OLIGO-ASTROCYTOMA
     Dosage: 310 MG; 150 MG/M2;QD
     Dates: start: 20110905
  11. TEMODAL [Suspect]
     Indication: MIXED OLIGO-ASTROCYTOMA
     Dosage: 310 MG; 150 MG/M2;QD
     Dates: start: 20111028, end: 20111102
  12. TEMODAL [Suspect]
     Indication: MIXED OLIGO-ASTROCYTOMA
     Dosage: 310 MG; 150 MG/M2;QD
     Dates: start: 20111003
  13. KEPPRA [Concomitant]
  14. ZOPITAN [Concomitant]
  15. ACETAMINOPHEN [Concomitant]

REACTIONS (6)
  - FALL [None]
  - BACK PAIN [None]
  - CONDITION AGGRAVATED [None]
  - NUCLEAR MAGNETIC RESONANCE IMAGING BRAIN ABNORMAL [None]
  - MUSCLE STRAIN [None]
  - VOMITING [None]
